FAERS Safety Report 8773631 (Version 5)
Quarter: 2013Q3

REPORT INFORMATION
  Report Type: Report from Study
  Country: US (occurrence: US)
  Receive Date: 20120907
  Receipt Date: 20130930
  Transmission Date: 20140515
  Serious: Yes (Other)
  Sender: FDA-Public Use
  Company Number: PHEH2012US008298

PATIENT
  Age: 7 Year
  Sex: Male

DRUGS (7)
  1. AFINITOR [Suspect]
     Indication: ASTROCYTOMA, LOW GRADE
     Dosage: 10 MG, DAILY
     Route: 048
     Dates: start: 20120404
  2. CLONAZEPAM [Concomitant]
  3. CLONIDINE [Concomitant]
  4. TRILEPTAL [Concomitant]
  5. FOCALIN [Concomitant]
  6. RISPERDAL [Concomitant]
  7. LISINOPRIL [Concomitant]
     Indication: HYPERTENSION

REACTIONS (11)
  - Joint dislocation [Unknown]
  - Joint effusion [Unknown]
  - Decubitus ulcer [Unknown]
  - Hypertension [Unknown]
  - Enuresis [Unknown]
  - Rhinorrhoea [Not Recovered/Not Resolved]
  - Erythema [Not Recovered/Not Resolved]
  - Fatigue [Unknown]
  - Gastroenteritis viral [Recovered/Resolved]
  - Vomiting [Recovered/Resolved]
  - Nausea [Recovered/Resolved]
